FAERS Safety Report 11073596 (Version 2)
Quarter: 2015Q2

REPORT INFORMATION
  Report Type: Report from Study
  Country: AU (occurrence: AU)
  Receive Date: 20150428
  Receipt Date: 20150508
  Transmission Date: 20150821
  Serious: Yes (Death, Hospitalization, Other)
  Sender: FDA-Public Use
  Company Number: AU-ABBVIE-12P-008-1007709-00

PATIENT
  Age: 70 Year
  Sex: Female

DRUGS (2)
  1. DUODOPA [Suspect]
     Active Substance: CARBIDOPA\LEVODOPA
     Indication: PRODUCT USED FOR UNKNOWN INDICATION
     Route: 061
     Dates: start: 20120903, end: 20121112
  2. DUODOPA [Suspect]
     Active Substance: CARBIDOPA\LEVODOPA
     Dosage: REDUCED BY 0.2ML
     Route: 061
     Dates: start: 20121112

REACTIONS (13)
  - Incorrect route of drug administration [Unknown]
  - Condition aggravated [Unknown]
  - Dysgeusia [Unknown]
  - Lymphoma [Unknown]
  - Dyspnoea [Unknown]
  - Anaemia [Unknown]
  - Device connection issue [Unknown]
  - Death [Fatal]
  - Anaemia [Not Recovered/Not Resolved]
  - Dyskinesia [Unknown]
  - Tremor [Unknown]
  - Muscle twitching [Unknown]
  - Eye movement disorder [Unknown]

NARRATIVE: CASE EVENT DATE: 20120918
